FAERS Safety Report 4312413-7 (Version None)
Quarter: 2004Q1

REPORT INFORMATION
  Report Type: 
  Country: None (occurrence: None)
  Receive Date: 20040303
  Receipt Date: 20040224
  Transmission Date: 20041129
  Serious: Yes (Hospitalization)
  Sender: FDA-Public Use
  Company Number: 200410058BSV

PATIENT
  Age: 76 Year
  Sex: Female

DRUGS (2)
  1. CIPROFLOXACIN [Suspect]
     Indication: PERITONITIS
     Dosage: INTRAVENOUS
     Route: 042
     Dates: start: 20040224
  2. CIPROFLOXACIN [Suspect]
     Indication: SEPSIS
     Dosage: INTRAVENOUS
     Route: 042
     Dates: start: 20040224

REACTIONS (5)
  - INFUSION RELATED REACTION [None]
  - MEDICATION ERROR [None]
  - OXYGEN CONSUMPTION INCREASED [None]
  - RENAL FAILURE [None]
  - RESPIRATORY DISORDER [None]
